FAERS Safety Report 11097887 (Version 2)
Quarter: 2017Q3

REPORT INFORMATION
  Report Type: Spontaneous
  Country: IT (occurrence: IT)
  Receive Date: 20150507
  Receipt Date: 20170725
  Transmission Date: 20171127
  Serious: Yes (Other)
  Sender: FDA-Public Use
  Company Number: IT-CIPLA LTD.-2015IT03523

PATIENT

DRUGS (5)
  1. PREGABALIN. [Concomitant]
     Active Substance: PREGABALIN
     Dosage: 300 MG, BID
     Route: 065
  2. ETOPOSIDE. [Suspect]
     Active Substance: ETOPOSIDE
     Dosage: 2 CYCLES
     Route: 065
     Dates: start: 2012
  3. FENTANYL TTS [Concomitant]
     Active Substance: FENTANYL
     Dosage: 50 MCG/H
     Route: 062
  4. GEMCITABINE [Suspect]
     Active Substance: GEMCITABINE\GEMCITABINE HYDROCHLORIDE
     Dosage: 1000 MG/SQM ON DAY 1, 8, 15, EVERY 28 DAYS, ADMINISTERED IN 30 MINUTES
     Route: 042
     Dates: start: 201212
  5. CISPLATIN. [Suspect]
     Active Substance: CISPLATIN
     Dosage: 2 CYCLES
     Route: 065
     Dates: start: 2012

REACTIONS (2)
  - Neutropenia [Unknown]
  - Disease progression [Unknown]

NARRATIVE: CASE EVENT DATE: 2012
